FAERS Safety Report 6007644-4 (Version None)
Quarter: 2008Q4

REPORT INFORMATION
  Report Type: 
  Country: None (occurrence: None)
  Receive Date: 20081217
  Receipt Date: 20080326
  Transmission Date: 20090506
  Serious: No
  Sender: FDA-Public Use
  Company Number: US-ASTRAZENECA-2008UW06089

PATIENT
  Age: 63 Year
  Sex: Male
  Weight: 101.2 kg

DRUGS (2)
  1. CRESTOR [Suspect]
     Indication: BLOOD CHOLESTEROL INCREASED
     Route: 048
  2. ANTIFUNGAL [Concomitant]

REACTIONS (2)
  - DIARRHOEA [None]
  - ERECTILE DYSFUNCTION [None]
